FAERS Safety Report 10963600 (Version 5)
Quarter: 2015Q2

REPORT INFORMATION
  Report Type: Spontaneous
  Country: IT (occurrence: IT)
  Receive Date: 20150328
  Receipt Date: 20150501
  Transmission Date: 20150821
  Serious: Yes (Other)
  Sender: FDA-Public Use
  Company Number: IT-ROCHE-1556249

PATIENT
  Age: 39 Year
  Sex: Female

DRUGS (11)
  1. PERJETA [Suspect]
     Active Substance: PERTUZUMAB
     Indication: HER-2 POSITIVE BREAST CANCER
     Dosage: 420 MG - CONCENTRATE FOR SOLUTION FOR INFUSION
     Route: 042
     Dates: start: 20150224
  2. TAXOTERE [Suspect]
     Active Substance: DOCETAXEL
     Indication: METAPLASTIC BREAST CARCINOMA
     Route: 042
     Dates: start: 20150225
  3. DEXAMETHASONE. [Concomitant]
     Active Substance: DEXAMETHASONE
     Route: 042
     Dates: start: 20150224, end: 20150323
  4. ZOFRAN [Concomitant]
     Active Substance: ONDANSETRON HYDROCHLORIDE
     Dosage: 4 MG/2ML, SOLUTION FOR INJECTION
     Route: 042
  5. RANITIDINE [Concomitant]
     Active Substance: RANITIDINE\RANITIDINE HYDROCHLORIDE
     Dosage: 50 MG/5ML
     Route: 042
  6. TAXOTERE [Suspect]
     Active Substance: DOCETAXEL
     Route: 065
     Dates: start: 20091029, end: 20100322
  7. TRIMETON (ITALY) [Concomitant]
     Dosage: 10 MG/1 ML, SOLUTION FOR INJECTION
     Route: 042
     Dates: start: 20150224, end: 20150323
  8. ALOXI [Concomitant]
     Active Substance: PALONOSETRON HYDROCHLORIDE
     Route: 042
     Dates: start: 20150224, end: 20150323
  9. DOCETAXEL. [Suspect]
     Active Substance: DOCETAXEL
     Indication: METAPLASTIC BREAST CARCINOMA
     Route: 042
  10. HERCEPTIN [Suspect]
     Active Substance: TRASTUZUMAB
     Indication: HER-2 POSITIVE BREAST CANCER
     Route: 042
     Dates: start: 20150224
  11. EMEND [Concomitant]
     Active Substance: APREPITANT
     Route: 048

REACTIONS (4)
  - Dermatitis allergic [Recovered/Resolved]
  - Electrocardiogram QT prolonged [Recovered/Resolved]
  - Rash generalised [Recovered/Resolved]
  - Bundle branch block right [Recovered/Resolved]

NARRATIVE: CASE EVENT DATE: 20150311
